FAERS Safety Report 20561456 (Version 2)
Quarter: 2022Q2

REPORT INFORMATION
  Report Type: Spontaneous
  Country: BR (occurrence: BR)
  Receive Date: 20220307
  Receipt Date: 20220425
  Transmission Date: 20220721
  Serious: Yes (Death, Hospitalization, Other)
  Sender: FDA-Public Use
  Company Number: BR-NOVARTISPH-NVSC2021BR248907

PATIENT
  Age: 89 Year
  Sex: Male
  Weight: 120 kg

DRUGS (5)
  1. EXELON [Suspect]
     Active Substance: RIVASTIGMINE TARTRATE
     Indication: Dementia Alzheimer^s type
     Dosage: 1.5 MG (STARTED 11 YEARS AGO AND STOPED AFTER 1 YEARS)
     Route: 048
  2. EXELON [Suspect]
     Active Substance: RIVASTIGMINE TARTRATE
     Dosage: 3 MG (STARTED 10 YEARS AGO AND STOPED AFTER 2 YEARS 2 MONTHS)
     Route: 048
  3. EXELON [Suspect]
     Active Substance: RIVASTIGMINE TARTRATE
     Dosage: 6 MG (STOPED AFTER 2 YEARS)
     Route: 048
     Dates: start: 201708
  4. EXELON [Suspect]
     Active Substance: RIVASTIGMINE TARTRATE
     Dosage: 4.5 MG
     Route: 065
     Dates: start: 2019
  5. EXELON [Suspect]
     Active Substance: RIVASTIGMINE TARTRATE
     Dosage: UNK
     Route: 065

REACTIONS (17)
  - Seizure [Fatal]
  - Febrile convulsion [Fatal]
  - COVID-19 [Fatal]
  - Pyrexia [Fatal]
  - Pneumonia aspiration [Fatal]
  - Pneumonia bacterial [Fatal]
  - Hallucination, visual [Recovering/Resolving]
  - Seizure [Recovered/Resolved]
  - Seizure [Recovered/Resolved]
  - Abdominal discomfort [Not Recovered/Not Resolved]
  - Hand fracture [Recovered/Resolved]
  - Thyroid disorder [Not Recovered/Not Resolved]
  - Condition aggravated [Not Recovered/Not Resolved]
  - Weight increased [Not Recovered/Not Resolved]
  - Flatulence [Not Recovered/Not Resolved]
  - Fall [Recovered/Resolved]
  - Malaise [Not Recovered/Not Resolved]

NARRATIVE: CASE EVENT DATE: 20220115
